FAERS Safety Report 11347598 (Version 1)
Quarter: 2015Q3

REPORT INFORMATION
  Report Type: Spontaneous
  Country: US (occurrence: US)
  Receive Date: 20150806
  Receipt Date: 20150806
  Transmission Date: 20151125
  Serious: Yes (Hospitalization, Other)
  Sender: FDA-Public Use
  Company Number: US-BAYER-2015-392426

PATIENT
  Age: 68 Year
  Sex: Female
  Weight: 65.76 kg

DRUGS (1)
  1. ALEVE [Suspect]
     Active Substance: NAPROXEN SODIUM
     Indication: ARTHRITIS

REACTIONS (2)
  - Septic shock [None]
  - Gastrointestinal injury [Unknown]

NARRATIVE: CASE EVENT DATE: 200806
